FAERS Safety Report 7769076-8 (Version None)
Quarter: 2011Q3

REPORT INFORMATION
  Report Type: 
  Country: None (occurrence: None)
  Receive Date: 20110922
  Receipt Date: 20100106
  Transmission Date: 20111222
  Serious: No
  Sender: FDA-Public Use
  Company Number: US-ASTRAZENECA-2009UW18482

PATIENT
  Age: 17099 Day
  Sex: Male
  Weight: 127 kg

DRUGS (13)
  1. ACETAMINOPHEN [Concomitant]
     Dates: start: 20070103
  2. GABAPENTIN [Concomitant]
     Dates: start: 20070211
  3. HYZAAR [Concomitant]
     Dosage: 100-25
     Dates: start: 20070410
  4. SEROQUEL [Suspect]
     Dosage: 25 MG, 200 MG, 300 MG
     Route: 048
     Dates: start: 20061208
  5. DOCUSATE SODIUM [Concomitant]
     Dates: start: 20070103
  6. METOPROLOL TARTRATE [Concomitant]
     Dates: start: 20070125
  7. LOVASTATIN [Concomitant]
     Dates: start: 20070125
  8. ISOSORBIDE MONONITRATE [Concomitant]
     Dates: start: 20070215
  9. SEROQUEL [Suspect]
     Indication: ANXIETY
     Dosage: 25 MG-200 MG
     Route: 048
     Dates: start: 20061208
  10. SEROQUEL [Suspect]
     Indication: DEPRESSION
     Dosage: 25 MG-200 MG
     Route: 048
     Dates: start: 20061208
  11. SEROQUEL [Suspect]
     Dosage: 25 MG, 200 MG, 300 MG
     Route: 048
     Dates: start: 20061208
  12. EFFEXOR XR [Concomitant]
     Dosage: 75-150 MG
     Dates: start: 20061103
  13. OMEPRAZOLE [Concomitant]
     Dates: start: 20061231

REACTIONS (2)
  - ULCER [None]
  - TYPE 2 DIABETES MELLITUS [None]
